FAERS Safety Report 5585852-4 (Version None)
Quarter: 2008Q1

REPORT INFORMATION
  Report Type: 
  Country: None (occurrence: None)
  Receive Date: 20080109
  Receipt Date: 20071001
  Transmission Date: 20080703
  Serious: Yes (Other)
  Sender: FDA-Public Use
  Company Number: ES-RANBAXY-2007RR-11248

PATIENT

DRUGS (1)
  1. LORAZEPAM [Suspect]
     Indication: ANXIETY

REACTIONS (1)
  - HEPATOTOXICITY [None]
